FAERS Safety Report 6304669-6 (Version None)
Quarter: 2009Q3

REPORT INFORMATION
  Report Type: 
  Country: None (occurrence: None)
  Receive Date: 20090811
  Receipt Date: 20090804
  Transmission Date: 20100115
  Serious: Yes (Hospitalization, Other)
  Sender: FDA-Public Use
  Company Number: US-ELI_LILLY_AND_COMPANY-US200905001075

PATIENT
  Sex: Male

DRUGS (5)
  1. HUMULIN N [Suspect]
     Indication: TYPE 1 DIABETES MELLITUS
     Dosage: 42 U, EACH MORNING
  2. HUMULIN N [Suspect]
     Dosage: 42 U, EACH EVENING
  3. GLUCOPHAGE [Concomitant]
     Dates: end: 20090401
  4. LIBRAX [Concomitant]
  5. NEXIUM [Concomitant]

REACTIONS (19)
  - BLINDNESS [None]
  - BLOOD GLUCOSE INCREASED [None]
  - BLOOD POTASSIUM DECREASED [None]
  - BRADYCARDIA [None]
  - CATARACT [None]
  - CHEST PAIN [None]
  - CHRONIC OBSTRUCTIVE PULMONARY DISEASE [None]
  - COUGH [None]
  - DIZZINESS [None]
  - DYSPNOEA [None]
  - DYSPNOEA EXERTIONAL [None]
  - EXPIRED DRUG ADMINISTERED [None]
  - GASTRITIS [None]
  - HYPOXIA [None]
  - NASAL CONGESTION [None]
  - OEDEMA PERIPHERAL [None]
  - PAIN IN EXTREMITY [None]
  - VENOUS INSUFFICIENCY [None]
  - WEIGHT INCREASED [None]
